FAERS Safety Report 20721613 (Version 5)
Quarter: 2022Q4

REPORT INFORMATION
  Report Type: Spontaneous
  Country: CA (occurrence: CA)
  Receive Date: 20220418
  Receipt Date: 20221223
  Transmission Date: 20230112
  Serious: Yes (Other)
  Sender: FDA-Public Use
  Company Number: CA-PFIZER INC-202101468414

PATIENT
  Age: 31 Year
  Sex: Female
  Weight: 66 kg

DRUGS (10)
  1. RUXIENCE [Suspect]
     Active Substance: RITUXIMAB-PVVR
     Indication: Granulomatosis with polyangiitis
     Dosage: 500 MG, SINGLE (SINGLE DOSE)
     Route: 042
     Dates: start: 20210301, end: 20210301
  2. RUXIENCE [Suspect]
     Active Substance: RITUXIMAB-PVVR
     Dosage: 500 MG X 1 IN DECEMBER 2021
     Route: 042
     Dates: start: 202112
  3. RUXIENCE [Suspect]
     Active Substance: RITUXIMAB-PVVR
     Dosage: 500 MG (500 MG X 1 IN DECEMBER 2021  )
     Route: 042
     Dates: start: 20211213, end: 20211213
  4. RUXIENCE [Suspect]
     Active Substance: RITUXIMAB-PVVR
     Dosage: 1 G, 1X2 WEEK, 2 DOSES
     Route: 042
     Dates: start: 20220815
  5. RUXIENCE [Suspect]
     Active Substance: RITUXIMAB-PVVR
     Dosage: 1 G, 1X2 WEEK, 2 DOSES
     Route: 042
     Dates: start: 20220815
  6. RUXIENCE [Suspect]
     Active Substance: RITUXIMAB-PVVR
     Dosage: 1 G, EVERY 2 WEEK, 2 DOSES
     Route: 042
     Dates: start: 20220815, end: 20220829
  7. ACETAMINOPHEN [Concomitant]
     Active Substance: ACETAMINOPHEN
     Indication: Premedication
     Dosage: 650 MG
     Dates: start: 20220815, end: 20220815
  8. DIPHENHYDRAMINE [Concomitant]
     Active Substance: DIPHENHYDRAMINE
     Indication: Premedication
     Dosage: 50 MG
     Dates: start: 20220815, end: 20220815
  9. DECADRON [Concomitant]
     Active Substance: DEXAMETHASONE
     Indication: Premedication
     Dosage: 100 MG
     Dates: start: 20220815, end: 20220815
  10. SEPTRA [Concomitant]
     Active Substance: SULFAMETHOXAZOLE\TRIMETHOPRIM
     Dosage: 1 DF, (UNKNOWN DOSE, FREQUENCY)

REACTIONS (14)
  - Haematochezia [Not Recovered/Not Resolved]
  - Orthopaedic procedure [Not Recovered/Not Resolved]
  - Haemorrhoids [Not Recovered/Not Resolved]
  - Nasal crusting [Not Recovered/Not Resolved]
  - Throat tightness [Not Recovered/Not Resolved]
  - Loss of personal independence in daily activities [Not Recovered/Not Resolved]
  - Arthralgia [Recovering/Resolving]
  - Musculoskeletal stiffness [Recovering/Resolving]
  - Joint range of motion decreased [Unknown]
  - Product use issue [Unknown]
  - Off label use [Unknown]
  - Off label use [Unknown]
  - Off label use [Unknown]
  - Intentional product use issue [Unknown]

NARRATIVE: CASE EVENT DATE: 20211001
